FAERS Safety Report 8843783 (Version 1)
Quarter: 2012Q4

REPORT INFORMATION
  Report Type: 
  Country: US (occurrence: US)
  Receive Date: 20121016
  Receipt Date: 20121016
  Transmission Date: 20130627
  Serious: No
  Sender: FDA-Public Use
  Company Number: US-VERTEX PHARMACEUTICAL INC.-2012-022300

PATIENT
  Sex: Female
  Weight: 95 kg

DRUGS (3)
  1. VX-950 [Suspect]
     Indication: HEPATITIS C
     Dosage: 750 mg, tid
     Route: 048
     Dates: start: 20120619
  2. PEGASYS [Concomitant]
     Indication: HEPATITIS C
     Dosage: 180 ?g, weekly
     Route: 058
     Dates: start: 20120619
  3. RIBASPHERE [Concomitant]
     Indication: HEPATITIS C
     Dosage: 200 mg am, 400 mg pm, prn
     Dates: start: 20120619

REACTIONS (1)
  - Depression [Unknown]
